FAERS Safety Report 20494623 (Version 1)
Quarter: 2022Q1

REPORT INFORMATION
  Report Type: Spontaneous
  Country: CN (occurrence: None)
  Receive Date: 20220221
  Receipt Date: 20220221
  Transmission Date: 20220423
  Serious: Yes (Other)
  Sender: FDA-Public Use
  Company Number: CN-ROCHE-3023341

PATIENT
  Age: 59 Year
  Sex: Male
  Weight: 65 kg

DRUGS (2)
  1. CAPECITABINE [Suspect]
     Active Substance: CAPECITABINE
     Indication: Oesophageal carcinoma
     Route: 048
     Dates: start: 20211208, end: 20211213
  2. PACLITAXEL [Concomitant]
     Active Substance: PACLITAXEL
     Indication: Oesophageal carcinoma
     Dates: start: 20211208

REACTIONS (3)
  - White blood cell count decreased [Recovered/Resolved]
  - Myelosuppression [Recovering/Resolving]
  - Off label use [Unknown]

NARRATIVE: CASE EVENT DATE: 20211213
